FAERS Safety Report 19705236 (Version 2)
Quarter: 2021Q3

REPORT INFORMATION
  Report Type: Report from Study
  Country: DE (occurrence: DE)
  Receive Date: 20210816
  Receipt Date: 20210921
  Transmission Date: 20211014
  Serious: Yes (Other)
  Sender: FDA-Public Use
  Company Number: NVSC2021DE180631

PATIENT
  Sex: Male
  Weight: 80 kg

DRUGS (10)
  1. ARCOXIA [Concomitant]
     Active Substance: ETORICOXIB
     Indication: PAIN
     Dosage: 60 MG, QD
     Route: 048
     Dates: start: 20161212
  2. COSENTYX [Suspect]
     Active Substance: SECUKINUMAB
     Dosage: 150 MG, QW,(ONCE)
     Route: 058
     Dates: start: 20210531
  3. NOVAMINSULFON [Concomitant]
     Active Substance: METAMIZOLE
     Indication: PAIN
     Dosage: 500 MG (UP TO 3X DAILY IF NEEDED)
     Route: 048
     Dates: start: 20170707
  4. COSENTYX [Suspect]
     Active Substance: SECUKINUMAB
     Indication: ANKYLOSING SPONDYLITIS
     Dosage: 150 MG, QW,(ONCE)
     Route: 058
     Dates: start: 20210510
  5. COSENTYX [Suspect]
     Active Substance: SECUKINUMAB
     Dosage: 150 MG, QW,(ONCE)
     Route: 058
     Dates: start: 20210517
  6. COSENTYX [Suspect]
     Active Substance: SECUKINUMAB
     Dosage: 150 MG, QW,(ONCE)
     Route: 058
     Dates: start: 20210524
  7. COSENTYX [Suspect]
     Active Substance: SECUKINUMAB
     Dosage: 150 MG, QW,(ONCE)
     Route: 058
     Dates: start: 20210607
  8. OMEPRAZOLE. [Concomitant]
     Active Substance: OMEPRAZOLE
     Indication: GASTRIC DISORDER
     Dosage: UNK (PRESCRIBED BY GENERAL PHYSICIAN)
     Route: 065
     Dates: start: 2012
  9. COSENTYX [Suspect]
     Active Substance: SECUKINUMAB
     Dosage: 150 MG, QMO,(ONCE)
     Route: 058
     Dates: start: 20210628, end: 20210628
  10. ORTOTON [Concomitant]
     Indication: MUSCLE TIGHTNESS
     Dosage: 1500 MG, QD,(1X 1500 MG,1X DAILY AT NIGHT))
     Route: 048
     Dates: start: 20210317

REACTIONS (1)
  - Respiratory tract infection [Recovered/Resolved]

NARRATIVE: CASE EVENT DATE: 202106
